FAERS Safety Report 4562572-6 (Version None)
Quarter: 2005Q1

REPORT INFORMATION
  Report Type: 
  Country: None (occurrence: None)
  Receive Date: 20050124
  Receipt Date: 20050113
  Transmission Date: 20050727
  Serious: Yes (Other)
  Sender: FDA-Public Use
  Company Number: HQWYE209217JUL04

PATIENT
  Age: 48 Year
  Sex: Female
  Weight: 60.84 kg

DRUGS (3)
  1. PREMPHASE 14/14 [Suspect]
     Indication: HORMONE REPLACEMENT THERAPY
     Dosage: ORAL
     Route: 048
     Dates: start: 20020101, end: 20020501
  2. ACTIVELLA [Suspect]
     Indication: HORMONE REPLACEMENT THERAPY
     Dosage: TRANSDERMAL
     Route: 062
     Dates: start: 20020301, end: 20020501
  3. PREMARIN [Suspect]
     Indication: HORMONE REPLACEMENT THERAPY
     Dosage: ORAL
     Route: 048
     Dates: start: 20020301

REACTIONS (7)
  - ASTHENIA [None]
  - BREAST CANCER METASTATIC [None]
  - DEPRESSION [None]
  - FATIGUE [None]
  - FEAR [None]
  - INSOMNIA [None]
  - NIGHT SWEATS [None]
